FAERS Safety Report 25045398 (Version 3)
Quarter: 2025Q1

REPORT INFORMATION
  Report Type: Spontaneous
  Country: IT (occurrence: IT)
  Receive Date: 20250306
  Receipt Date: 20250320
  Transmission Date: 20250409
  Serious: Yes (Death, Hospitalization, Other)
  Sender: BRACCO
  Company Number: IT-BRACCO-2025IT01205

PATIENT
  Age: 58 Year
  Sex: Female

DRUGS (1)
  1. IOMERON [Suspect]
     Active Substance: IOMEPROL
     Indication: Computerised tomogram
     Route: 042
     Dates: start: 20250214, end: 20250214

REACTIONS (3)
  - Loss of consciousness [Fatal]
  - Hypertonia [Fatal]
  - Hyperhidrosis [Fatal]

NARRATIVE: CASE EVENT DATE: 20250214
